FAERS Safety Report 13736946 (Version 1)
Quarter: 2017Q3

REPORT INFORMATION
  Report Type: Spontaneous
  Country: JP (occurrence: JP)
  Receive Date: 20170710
  Receipt Date: 20170710
  Transmission Date: 20171127
  Serious: Yes (Hospitalization, Other)
  Sender: FDA-Public Use
  Company Number: JP-PFIZER INC-2017237096

PATIENT
  Age: 78 Year
  Sex: Female
  Weight: 56.8 kg

DRUGS (23)
  1. LIXIANA [Concomitant]
     Active Substance: EDOXABAN TOSYLATE
  2. BLOPRESS [Concomitant]
     Active Substance: CANDESARTAN CILEXETIL
  3. CALBLOCK [Concomitant]
     Active Substance: AZELNIDIPINE
  4. VOGLIBOSE [Concomitant]
     Active Substance: VOGLIBOSE
  5. LOXONIN [Concomitant]
     Active Substance: LOXOPROFEN SODIUM
  6. CODEINE PHOSPHATE [Concomitant]
     Active Substance: CODEINE PHOSPHATE
  7. BIO-THREE [Concomitant]
     Active Substance: HERBALS
  8. METOCLOPRAMIDE. [Concomitant]
     Active Substance: METOCLOPRAMIDE
  9. BETAMETHASONE. [Concomitant]
     Active Substance: BETAMETHASONE
  10. LIPITOR [Concomitant]
     Active Substance: ATORVASTATIN CALCIUM
  11. ZETIA [Concomitant]
     Active Substance: EZETIMIBE
  12. IRINOTECAN HCL 100MG HOSPIRA [Suspect]
     Active Substance: IRINOTECAN HYDROCHLORIDE
     Indication: SMALL CELL LUNG CANCER
     Dosage: 120 MG, 1X/DAY
     Route: 041
     Dates: start: 20170315, end: 20170501
  13. BROTIZOLAM [Concomitant]
     Active Substance: BROTIZOLAM
  14. MS CONTIN [Concomitant]
     Active Substance: MORPHINE SULFATE
  15. TENELIA [Concomitant]
     Active Substance: TENELIGLIPTIN
  16. TAKELDA [Concomitant]
     Active Substance: ASPIRIN\LANSOPRAZOLE
  17. SHINBIT [Concomitant]
  18. MAGNESIUM OXIDE. [Concomitant]
     Active Substance: MAGNESIUM OXIDE
     Dosage: UNK
  19. LASIX [Concomitant]
     Active Substance: FUROSEMIDE
  20. LOXOPROFEN [Concomitant]
     Active Substance: LOXOPROFEN
     Dosage: UNK
  21. OPSO [Concomitant]
     Active Substance: MORPHINE HYDROCHLORIDE
  22. ARTIST [Concomitant]
     Active Substance: CARVEDILOL
  23. LOTRIGA [Concomitant]
     Active Substance: OMEGA-3-ACID ETHYL ESTERS

REACTIONS (1)
  - Lung disorder [Recovering/Resolving]

NARRATIVE: CASE EVENT DATE: 20170517
